FAERS Safety Report 21541071 (Version 3)
Quarter: 2022Q4

REPORT INFORMATION
  Report Type: Report from Study
  Country: None (occurrence: CO)
  Receive Date: 20221102
  Receipt Date: 20221114
  Transmission Date: 20230113
  Serious: Yes (Other)
  Sender: FDA-Public Use
  Company Number: CO-AKCEA THERAPEUTICS, INC.-2022IS004232

PATIENT
  Age: 57 Year
  Sex: Male
  Weight: 67.136 kg

DRUGS (3)
  1. TEGSEDI [Suspect]
     Active Substance: INOTERSEN SODIUM
     Indication: Familial amyloidosis
     Route: 058
     Dates: start: 20220624
  2. DEVICE [Suspect]
     Active Substance: DEVICE
  3. VITAMIN A [Concomitant]
     Active Substance: VITAMIN A
     Route: 065
     Dates: start: 20220812

REACTIONS (2)
  - Creatinine urine increased [Recovered/Resolved]
  - Protein albumin ratio decreased [Recovered/Resolved]

NARRATIVE: CASE EVENT DATE: 20221015
